FAERS Safety Report 5148244-8 (Version None)
Quarter: 2006Q4

REPORT INFORMATION
  Report Type: 
  Country: None (occurrence: None)
  Receive Date: 20061106
  Receipt Date: 20061024
  Transmission Date: 20070319
  Serious: Yes (Life-Threatening, Hospitalization)
  Sender: FDA-Public Use
  Company Number: CERZ-11266

PATIENT
  Age: 31 Month
  Sex: Male
  Weight: 7 kg

DRUGS (4)
  1. CEREZYME [Suspect]
     Indication: GAUCHER'S DISEASE
     Dosage: 85 U/KG Q2WKS; IV
     Route: 042
     Dates: start: 20041102
  2. PHENOBARBITAL TAB [Concomitant]
  3. VALPROATE SODIUM [Concomitant]
  4. MIDAZOLAM [Concomitant]

REACTIONS (1)
  - DYSPNOEA [None]
